FAERS Safety Report 11031659 (Version 1)
Quarter: 2015Q2

REPORT INFORMATION
  Report Type: Spontaneous
  Country: US (occurrence: US)
  Receive Date: 20150415
  Receipt Date: 20150415
  Transmission Date: 20150821
  Serious: No
  Sender: FDA-Public Use
  Company Number: US-SA-2015SA035217

PATIENT
  Sex: Female

DRUGS (34)
  1. VALIUM [Suspect]
     Active Substance: DIAZEPAM
     Route: 065
  2. PERCOCET [Suspect]
     Active Substance: ACETAMINOPHEN\OXYCODONE HYDROCHLORIDE
     Route: 065
  3. OXYBUTYNIN [Concomitant]
     Active Substance: OXYBUTYNIN
     Dosage: STRENGTH: 5 MG. DOSE: 1 TAB PER DAY IF NEEDED, NIGHT ANOTHTER 0.5 TAB (APPROX 45 MO)
  4. FENTANYL. [Concomitant]
     Active Substance: FENTANYL
     Indication: PAIN
     Dosage: STRENGTH: 25 MCG, PATCH
  5. VITAMIN D3 [Concomitant]
     Active Substance: CHOLECALCIFEROL
     Dosage: STRENGTH: 1000 IU
     Route: 060
  6. ALPRAZOLAM. [Suspect]
     Active Substance: ALPRAZOLAM
     Route: 065
  7. ZOLOFT [Suspect]
     Active Substance: SERTRALINE HYDROCHLORIDE
     Route: 065
  8. ELAVIL [Suspect]
     Active Substance: AMITRIPTYLINE HYDROCHLORIDE
     Route: 065
  9. ATIVAN [Suspect]
     Active Substance: LORAZEPAM
     Route: 065
  10. PROZAC [Suspect]
     Active Substance: FLUOXETINE HYDROCHLORIDE
     Route: 065
  11. DEMEROL [Suspect]
     Active Substance: MEPERIDINE HYDROCHLORIDE
     Route: 065
  12. METAXALONE. [Suspect]
     Active Substance: METAXALONE
     Route: 065
  13. PERCODAN [Suspect]
     Active Substance: ASPIRIN\OXYCODONE HYDROCHLORIDE
     Route: 065
  14. CODEINE PHOSPHATE [Suspect]
     Active Substance: CODEINE PHOSPHATE
     Route: 065
  15. LYRICA [Concomitant]
     Active Substance: PREGABALIN
  16. SPIRIVA [Concomitant]
     Active Substance: TIOTROPIUM BROMIDE MONOHYDRATE
     Dosage: STRENGTH: 18 MCG/100 MG HANDIHALER
  17. PRIMIDONE. [Concomitant]
     Active Substance: PRIMIDONE
     Indication: ESSENTIAL TREMOR
     Dosage: 1 IN THE AM AND 2 IN PM
  18. OXYCONTIN [Suspect]
     Active Substance: OXYCODONE HYDROCHLORIDE
     Route: 065
  19. DICYCLOMINE [Concomitant]
     Active Substance: DICYCLOMINE HYDROCHLORIDE
     Dosage: STRENGTH: 20 MG
  20. CLOTRIMAZOLE/BETAMETHASONE [Concomitant]
  21. HYDROMORPHONE [Suspect]
     Active Substance: HYDROMORPHONE
     Route: 065
  22. TOFRANIL [Suspect]
     Active Substance: IMIPRAMINE HYDROCHLORIDE
     Route: 065
  23. POTASSIUM CHLORIDE. [Concomitant]
     Active Substance: POTASSIUM CHLORIDE
     Indication: IRRITABLE BOWEL SYNDROME
     Dosage: ORAL SOLUTION USP 10% SF ORANGE UPTO 3 TIMES PER DAY DOSE:1 TEASPOON(S)
  24. LITHIUM. [Suspect]
     Active Substance: LITHIUM
     Route: 065
  25. PAXIL [Concomitant]
     Active Substance: PAROXETINE HYDROCHLORIDE
     Dosage: 1 IN AM AND 1 PM
  26. TRAZODONE [Concomitant]
     Active Substance: TRAZODONE HYDROCHLORIDE
     Dosage: STRENGTH: 150 MG AT BEDTIME
  27. PROTONIX [Concomitant]
     Active Substance: PANTOPRAZOLE SODIUM
     Dosage: 1TAB AT AM AND 1IN PM
  28. FIORICET [Concomitant]
     Active Substance: ACETAMINOPHEN\BUTALBITAL\CAFFEINE
     Indication: MIGRAINE
     Dosage: DOSE: 1 EVERY 6 HOURS AS NEEDED
  29. LOSARTAN POTASSIUM. [Concomitant]
     Active Substance: LOSARTAN POTASSIUM
     Dosage: STRENGTH: 100 MG
  30. MORPHINE SULFATE. [Suspect]
     Active Substance: MORPHINE SULFATE
     Route: 065
  31. GUAIFENESIN. [Suspect]
     Active Substance: GUAIFENESIN
     Route: 065
  32. ALBUTEROL SULFATE. [Concomitant]
     Active Substance: ALBUTEROL SULFATE
     Route: 055
  33. LIDODERM [Concomitant]
     Active Substance: LIDOCAINE
     Indication: PAIN
     Dosage: STRENGTH: 5% PATCH
  34. AFRIN [Concomitant]
     Active Substance: OXYMETAZOLINE
     Dosage: DOSE: AS NEEDED UPTO 2 TIMES PER DAY NASAL SPARAY
     Route: 045

REACTIONS (4)
  - Dyspnoea [Unknown]
  - Drug hypersensitivity [Unknown]
  - Hallucination [Unknown]
  - Asthma [Unknown]
